FAERS Safety Report 11398415 (Version 1)
Quarter: 2015Q3

REPORT INFORMATION
  Report Type: Spontaneous
  Country: US (occurrence: None)
  Receive Date: 20150818
  Receipt Date: 20150818
  Transmission Date: 20151125
  Serious: No
  Sender: FDA-Public Use
  Company Number: SOM4091-AE

PATIENT
  Age: 62 Year
  Sex: Male

DRUGS (1)
  1. SF 5000 PLUS [Suspect]
     Active Substance: SODIUM FLUORIDE
     Dosage: TOPICAL ON TEETH
     Dates: start: 201408, end: 201508

REACTIONS (1)
  - Oral discomfort [None]

NARRATIVE: CASE EVENT DATE: 20150805
